FAERS Safety Report 7851955-4 (Version None)
Quarter: 2011Q4

REPORT INFORMATION
  Report Type: 
  Country: None (occurrence: None)
  Receive Date: 20111026
  Receipt Date: 20111013
  Transmission Date: 20120403
  Serious: Yes (Hospitalization)
  Sender: FDA-Public Use
  Company Number: US-ELI_LILLY_AND_COMPANY-US201110003988

PATIENT
  Sex: Male

DRUGS (1)
  1. ZYPREXA [Suspect]
     Indication: BIPOLAR DISORDER
     Dosage: 10 MG, BID
     Dates: start: 20000101

REACTIONS (5)
  - MENTAL IMPAIRMENT [None]
  - SUICIDAL IDEATION [None]
  - HYPONATRAEMIC SYNDROME [None]
  - HOSPITALISATION [None]
  - DYSARTHRIA [None]
